FAERS Safety Report 7599305-5 (Version None)
Quarter: 2011Q3

REPORT INFORMATION
  Report Type: 
  Country: None (occurrence: None)
  Receive Date: 20110711
  Receipt Date: 20110613
  Transmission Date: 20111222
  Serious: Yes (Hospitalization, Other)
  Sender: FDA-Public Use
  Company Number: US-BAYER-201032460NA

PATIENT
  Age: 32 Year
  Sex: Female
  Weight: 81.633 kg

DRUGS (11)
  1. DROSPIRENONE AND ETHINYL ESTRADIOL [Suspect]
     Indication: PRODUCT USED FOR UNKNOWN INDICATION
     Dosage: UNK UNK, UNK
     Route: 048
     Dates: start: 20081119, end: 20090831
  2. METFORMIN HCL [Concomitant]
     Dosage: UNK
  3. INHALER [Concomitant]
  4. YASMIN [Suspect]
     Indication: PRODUCT USED FOR UNKNOWN INDICATION
     Dosage: UNK UNK, UNK
     Route: 048
     Dates: start: 20070503, end: 20080120
  5. LEXAPRO [Concomitant]
     Dosage: UNK
  6. DEFENSE [Concomitant]
  7. ASCORBIC ACID [Concomitant]
  8. IBUPROFEN (ADVIL) [Concomitant]
  9. YASMIN [Suspect]
     Dosage: UNK
     Dates: start: 20080407
  10. YAZ [Suspect]
     Indication: PRODUCT USED FOR UNKNOWN INDICATION
     Route: 048
  11. ASPIRIN [Concomitant]

REACTIONS (2)
  - PULMONARY EMBOLISM [None]
  - THROMBOSIS [None]
